FAERS Safety Report 4524547-2 (Version None)
Quarter: 2005Q1

REPORT INFORMATION
  Report Type: 
  Country: None (occurrence: None)
  Receive Date: 20041117
  Receipt Date: 20040921
  Transmission Date: 20050727
  Serious: Yes (Hospitalization, Other)
  Sender: FDA-Public Use
  Company Number: US-JNJFOC-20040202006

PATIENT
  Age: 80 Year
  Sex: Male
  Weight: 63.5036 kg

DRUGS (3)
  1. LEVAQUIN [Suspect]
     Indication: URINARY TRACT INFECTION
     Dosage: 500 MG
     Dates: start: 20021230
  2. FLONASE [Concomitant]
  3. FLOMAX [Concomitant]

REACTIONS (2)
  - CHEST PAIN [None]
  - HEADACHE [None]
